FAERS Safety Report 5954168-6 (Version None)
Quarter: 2008Q4

REPORT INFORMATION
  Report Type: 
  Country: None (occurrence: None)
  Receive Date: 20081117
  Receipt Date: 20081106
  Transmission Date: 20090506
  Serious: Yes (Disabling)
  Sender: FDA-Public Use
  Company Number: PL-JNJFOC-20081101474

PATIENT
  Age: 55 Year
  Sex: Male
  Weight: 70 kg

DRUGS (1)
  1. REMICADE [Suspect]
     Indication: DYSKINESIA
     Route: 042

REACTIONS (1)
  - RENAL CELL CARCINOMA [None]
